FAERS Safety Report 8762628 (Version 2)
Quarter: 2012Q4

REPORT INFORMATION
  Report Type: Report from Study
  Country: DE (occurrence: DE)
  Receive Date: 20120830
  Receipt Date: 20121011
  Transmission Date: 20130627
  Serious: Yes (Hospitalization, Other)
  Sender: FDA-Public Use
  Company Number: DE-ROCHE-1106286

PATIENT
  Age: 73 None
  Sex: Male
  Weight: 62.7 kg

DRUGS (2)
  1. AVASTIN [Suspect]
     Indication: NON-SMALL CELL LUNG CANCER
     Route: 042
     Dates: start: 20101108, end: 20101220
  2. PEMETREXED DISODIUM [Suspect]
     Indication: NON-SMALL CELL LUNG CANCER
     Route: 042
     Dates: start: 20101108, end: 20101220

REACTIONS (3)
  - Amaurosis fugax [Recovered/Resolved]
  - Gastric haemorrhage [Recovered/Resolved]
  - Duodenal ulcer [Recovered/Resolved]
